FAERS Safety Report 8373525-4 (Version None)
Quarter: 2012Q2

REPORT INFORMATION
  Report Type: 
  Country: None (occurrence: None)
  Receive Date: 20120521
  Receipt Date: 20110801
  Transmission Date: 20120825
  Serious: No
  Sender: FDA-Public Use
  Company Number: US-TEVA-2011003893

PATIENT
  Sex: Male
  Weight: 96.248 kg

DRUGS (4)
  1. TREANDA [Suspect]
     Indication: CHRONIC LYMPHOCYTIC LEUKAEMIA
     Route: 042
     Dates: start: 20110711, end: 20110712
  2. BENADRYL [Concomitant]
     Route: 042
  3. DECADRON [Concomitant]
     Route: 042
  4. ZOFRAN [Concomitant]
     Route: 042

REACTIONS (2)
  - INFLAMMATION [None]
  - INJECTION SITE PHLEBITIS [None]
